FAERS Safety Report 5283191-2 (Version None)
Quarter: 2007Q2

REPORT INFORMATION
  Report Type: 
  Country: None (occurrence: None)
  Receive Date: 20070402
  Receipt Date: 20070330
  Transmission Date: 20071010
  Serious: Yes (Hospitalization)
  Sender: FDA-Public Use
  Company Number: US-GLAXOSMITHKLINE-A0645312A

PATIENT
  Sex: Male
  Weight: 3.7 kg

DRUGS (3)
  1. BUPROPION HYDROCHLORIDE [Suspect]
     Indication: BIPOLAR DISORDER
  2. LAMOTRIGINE [Suspect]
     Indication: BIPOLAR DISORDER
  3. XANAX [Concomitant]

REACTIONS (2)
  - ADVERSE EVENT [None]
  - HOSPITALISATION [None]
